FAERS Safety Report 23689453 (Version 1)
Quarter: 2024Q1

REPORT INFORMATION
  Report Type: Spontaneous
  Country: US (occurrence: US)
  Receive Date: 20240331
  Receipt Date: 20240331
  Transmission Date: 20240410
  Serious: No
  Sender: FDA-Public Use
  Company Number: US-TEVA-VS-3152715

PATIENT
  Age: 75 Year
  Sex: Female
  Weight: 124.74 kg

DRUGS (1)
  1. GABAPENTIN [Suspect]
     Active Substance: GABAPENTIN
     Indication: Diabetic neuropathy
     Dosage: TIME INTERVAL: 0.33333333 DAYS
     Route: 065

REACTIONS (3)
  - Eye pruritus [Unknown]
  - Dermatitis [Unknown]
  - Ocular hyperaemia [Unknown]

NARRATIVE: CASE EVENT DATE: 20240101
